FAERS Safety Report 14156153 (Version 1)
Quarter: 2017Q4

REPORT INFORMATION
  Report Type: Spontaneous
  Country: GR (occurrence: GR)
  Receive Date: 20171103
  Receipt Date: 20171103
  Transmission Date: 20180321
  Serious: Yes (Other)
  Sender: FDA-Public Use
  Company Number: PHHY2017GR159057

PATIENT
  Age: 44 Year
  Sex: Female

DRUGS (1)
  1. GILENYA [Suspect]
     Active Substance: FINGOLIMOD HYDROCHLORIDE
     Indication: MULTIPLE SCLEROSIS
     Dosage: 0.5 MG, QD
     Route: 048
     Dates: start: 20171023

REACTIONS (7)
  - Amnesia [Unknown]
  - Hypoaesthesia [Unknown]
  - Loss of consciousness [Unknown]
  - Dysstasia [Unknown]
  - Speech disorder [Unknown]
  - Eye disorder [Unknown]
  - Headache [Unknown]
